FAERS Safety Report 18916352 (Version 1)
Quarter: 2021Q1

REPORT INFORMATION
  Report Type: Spontaneous
  Country: CA (occurrence: CA)
  Receive Date: 20210219
  Receipt Date: 20210219
  Transmission Date: 20210420
  Serious: Yes (Other)
  Sender: FDA-Public Use
  Company Number: CA-PFIZER INC-2021161065

PATIENT
  Age: 74 Year
  Sex: Female

DRUGS (6)
  1. XELJANZ [Suspect]
     Active Substance: TOFACITINIB CITRATE
     Indication: RHEUMATOID ARTHRITIS
     Dosage: 5 MG, 2X/DAY
     Route: 048
  2. ORENCIA [Suspect]
     Active Substance: ABATACEPT
     Route: 065
  3. LISINOPRIL DIHYDRATE [Concomitant]
     Active Substance: LISINOPRIL
     Route: 065
  4. METHOTREXATE. [Concomitant]
     Active Substance: METHOTREXATE
     Indication: RHEUMATOID ARTHRITIS
     Dosage: UNK
     Route: 065
  5. METHOTREXATE. [Concomitant]
     Active Substance: METHOTREXATE
     Indication: BLOOD PRESSURE MEASUREMENT
     Dosage: 4 DF, WEEKLY
     Route: 048
  6. RABEPRAZOLE [Concomitant]
     Active Substance: RABEPRAZOLE
     Dosage: 20 MG
     Route: 065

REACTIONS (19)
  - Abdominal pain [Recovered/Resolved]
  - Weight decreased [Recovered/Resolved]
  - Drug ineffective [Recovered/Resolved]
  - Acne [Recovered/Resolved]
  - Candida infection [Recovered/Resolved]
  - Headache [Recovered/Resolved]
  - Diarrhoea [Recovered/Resolved]
  - Gastrooesophageal reflux disease [Recovered/Resolved]
  - Macular degeneration [Recovered/Resolved]
  - Nasal congestion [Recovered/Resolved]
  - Abdominal discomfort [Recovered/Resolved]
  - Hypertension [Recovered/Resolved]
  - Rhinorrhoea [Recovered/Resolved]
  - Visual impairment [Recovered/Resolved]
  - Dry mouth [Recovered/Resolved]
  - Treatment failure [Recovered/Resolved]
  - Oral herpes [Recovered/Resolved]
  - Back pain [Recovered/Resolved]
  - Fatigue [Recovered/Resolved]
